FAERS Safety Report 4679919-2 (Version None)
Quarter: 2005Q2

REPORT INFORMATION
  Report Type: 
  Country: None (occurrence: None)
  Receive Date: 20050602
  Receipt Date: 20050425
  Transmission Date: 20051028
  Serious: Yes (Death)
  Sender: FDA-Public Use
  Company Number: PHHO2005JP06745

PATIENT
  Sex: Female
  Weight: 38 kg

DRUGS (7)
  1. NATEGLINIDE [Concomitant]
     Indication: DIABETES MELLITUS
     Dates: start: 19990906
  2. GASTER D [Concomitant]
     Indication: GASTRITIS
     Dates: start: 19971101
  3. NORVASC [Concomitant]
     Indication: HYPERTENSION
     Dates: start: 19990222
  4. PANALDINE [Concomitant]
     Indication: ARTERIOSCLEROSIS
     Dates: start: 19990202
  5. SELBEX [Concomitant]
     Indication: GASTRITIS
     Dates: start: 19971101
  6. AMARYL [Concomitant]
     Indication: DIABETES MELLITUS
     Dates: start: 20010702
  7. LOCHOL [Suspect]
     Indication: HYPERCHOLESTEROLAEMIA
     Dosage: 20 MG, QD
     Route: 048
     Dates: start: 20000724

REACTIONS (1)
  - CARDIAC FAILURE [None]
